FAERS Safety Report 17282444 (Version 3)
Quarter: 2020Q3

REPORT INFORMATION
  Report Type: Report from Study
  Country: IT (occurrence: IT)
  Receive Date: 20200117
  Receipt Date: 20200713
  Transmission Date: 20201102
  Serious: Yes (Hospitalization)
  Sender: FDA-Public Use
  Company Number: IT-MYLANLABS-2020M1005396

PATIENT
  Age: 51 Year
  Sex: Female

DRUGS (11)
  1. FLURAZEPAM [Suspect]
     Active Substance: FLURAZEPAM HYDROCHLORIDE
     Indication: PRODUCT USED FOR UNKNOWN INDICATION
     Dosage: UNK
     Route: 048
     Dates: start: 20191004, end: 20191004
  2. ACETYLSALICYLIC ACID [Concomitant]
     Active Substance: ASPIRIN
     Dosage: UNK
  3. MIRTAZAPINE. [Concomitant]
     Active Substance: MIRTAZAPINE
     Indication: HISTRIONIC PERSONALITY DISORDER
     Dosage: UNK
     Route: 048
  4. RIVOTRIL [Suspect]
     Active Substance: CLONAZEPAM
     Indication: PRODUCT USED FOR UNKNOWN INDICATION
     Dosage: UNK
     Route: 048
     Dates: start: 20191004, end: 20191004
  5. DELORAZEPAM [Concomitant]
     Active Substance: DELORAZEPAM
     Indication: HISTRIONIC PERSONALITY DISORDER
     Dosage: UNK
     Route: 048
  6. PARACETAMOL [Suspect]
     Active Substance: ACETAMINOPHEN
     Indication: PRODUCT USED FOR UNKNOWN INDICATION
     Dosage: 60 GRAM, TOTAL
     Route: 048
     Dates: start: 20200403, end: 20200403
  7. FUROSEMIDE W/SPIRONOLACTONE [Concomitant]
     Active Substance: FUROSEMIDE\SPIRONOLACTONE
     Dosage: UNK
  8. CLONAZEPAM. [Suspect]
     Active Substance: CLONAZEPAM
     Indication: PRODUCT USED FOR UNKNOWN INDICATION
     Dosage: UNK
     Route: 051
     Dates: start: 20191004, end: 20191004
  9. GABAPENTIN. [Concomitant]
     Active Substance: GABAPENTIN
     Indication: HISTRIONIC PERSONALITY DISORDER
     Dosage: UNK
     Route: 048
  10. PANTOPRAZOLE [Concomitant]
     Active Substance: PANTOPRAZOLE
     Indication: PROPHYLAXIS
     Dosage: UNK
  11. LACOSAMIDE. [Concomitant]
     Active Substance: LACOSAMIDE
     Dosage: UNK

REACTIONS (7)
  - Presyncope [Recovering/Resolving]
  - Intentional self-injury [Recovering/Resolving]
  - Sopor [Recovering/Resolving]
  - Melaena [Recovering/Resolving]
  - Cold sweat [Recovering/Resolving]
  - Intentional product misuse [Unknown]
  - Drug abuse [Recovering/Resolving]

NARRATIVE: CASE EVENT DATE: 20191004
